FAERS Safety Report 17376034 (Version 1)
Quarter: 2020Q1

REPORT INFORMATION
  Report Type: Spontaneous
  Country: DE (occurrence: DE)
  Receive Date: 20200206
  Receipt Date: 20200206
  Transmission Date: 20200409
  Serious: Yes (Other)
  Sender: FDA-Public Use
  Company Number: DE-TEVA-2020-DE-1181128

PATIENT
  Sex: Female

DRUGS (3)
  1. MINOCYCLINE [Suspect]
     Active Substance: MINOCYCLINE HYDROCHLORIDE
     Route: 048
     Dates: start: 201912
  2. DULOXETIN [Concomitant]
     Active Substance: DULOXETINE
     Dosage: 30 MILLIGRAM DAILY; 0-0-1
     Route: 048
  3. DULOXETIN [Concomitant]
     Active Substance: DULOXETINE
     Dosage: 60 MILLIGRAM DAILY; 1-0-0
     Route: 048

REACTIONS (1)
  - Suicidal ideation [Recovered/Resolved]
